FAERS Safety Report 22323852 (Version 5)
Quarter: 2023Q2

REPORT INFORMATION
  Report Type: Spontaneous
  Country: US (occurrence: US)
  Receive Date: 20230516
  Receipt Date: 20230603
  Transmission Date: 20230721
  Serious: No
  Sender: FDA-Public Use
  Company Number: US-UNITED THERAPEUTICS-UNT-2023-013476

PATIENT
  Age: 38 Year
  Sex: Female
  Weight: 54.422 kg

DRUGS (7)
  1. REMODULIN [Suspect]
     Active Substance: TREPROSTINIL
     Indication: Pulmonary arterial hypertension
     Dosage: 0.0345 ?G/KG, CONTINUING
     Route: 058
  2. REMODULIN [Suspect]
     Active Substance: TREPROSTINIL
     Dosage: 0.0385 ?G/KG (0.064 ?L/H), CONTINUING
     Route: 058
  3. REMODULIN [Suspect]
     Active Substance: TREPROSTINIL
     Dosage: UNK, CONTINUING
     Route: 058
     Dates: start: 20230206, end: 20230526
  4. REMODULIN [Suspect]
     Active Substance: TREPROSTINIL
     Indication: Pulmonary arterial hypertension
     Dosage: 0.0365 ?G/KG (PUMP RATE OF 0.064 ML/HR), CONTINUING
     Route: 058
     Dates: start: 20230526
  5. REMODULIN [Suspect]
     Active Substance: TREPROSTINIL
     Dosage: 0.0385 ?G/KG, CONTINUING
     Route: 058
     Dates: start: 202305
  6. LETAIRIS [Concomitant]
     Active Substance: AMBRISENTAN
     Indication: Product used for unknown indication
     Dosage: UNK
     Route: 065
  7. ADEMPAS [Concomitant]
     Active Substance: RIOCIGUAT
     Indication: Product used for unknown indication
     Dosage: UNK
     Route: 065

REACTIONS (15)
  - Lymphadenopathy [Unknown]
  - Lymph node pain [Unknown]
  - Infusion site swelling [Unknown]
  - Infusion site pain [Unknown]
  - Vaginal haemorrhage [Unknown]
  - Labia enlarged [Unknown]
  - Vulvovaginal pruritus [Unknown]
  - Infusion site infection [Unknown]
  - Weight decreased [Unknown]
  - Decreased appetite [Unknown]
  - Drug intolerance [Unknown]
  - Subcutaneous drug absorption impaired [Unknown]
  - Irritability [Unknown]
  - Feeling abnormal [Unknown]
  - Incorrect dose administered [Unknown]

NARRATIVE: CASE EVENT DATE: 20230501
